FAERS Safety Report 16251850 (Version 2)
Quarter: 2019Q2

REPORT INFORMATION
  Report Type: Spontaneous
  Country: JP (occurrence: JP)
  Receive Date: 20190429
  Receipt Date: 20190530
  Transmission Date: 20190711
  Serious: Yes (Hospitalization, Other)
  Sender: FDA-Public Use
  Company Number: JP-JNJFOC-20190432219

PATIENT
  Age: 77 Year
  Sex: Male

DRUGS (1)
  1. DARZALEX [Suspect]
     Active Substance: DARATUMUMAB
     Indication: PRODUCT USED FOR UNKNOWN INDICATION
     Route: 041
     Dates: start: 20181205

REACTIONS (4)
  - Neutrophil count decreased [Recovered/Resolved]
  - Immunoglobulins decreased [Recovering/Resolving]
  - Pneumocystis jirovecii pneumonia [Recovered/Resolved]
  - Listeraemia [Recovered/Resolved]

NARRATIVE: CASE EVENT DATE: 20190104
